FAERS Safety Report 8048615-6 (Version None)
Quarter: 2012Q1

REPORT INFORMATION
  Report Type: 
  Country: None (occurrence: None)
  Receive Date: 20120117
  Receipt Date: 20120113
  Transmission Date: 20120608
  Serious: Yes (Other)
  Sender: FDA-Public Use
  Company Number: US-PFIZER INC-2012010943

PATIENT
  Sex: Male
  Weight: 130 kg

DRUGS (7)
  1. ZOLOFT [Suspect]
     Indication: DEPRESSION
     Dosage: 200 MG, 2X/DAY
     Dates: start: 20110615
  2. CIALIS [Suspect]
     Dosage: 70 MG, AS NEEDED
     Dates: start: 20110820
  3. MARIJUANA [Concomitant]
     Indication: ARTHRALGIA
     Dosage: UNK
  4. ASPIRIN [Suspect]
     Indication: ARTHRALGIA
     Dosage: 100 MG, 2X/DAY
  5. ASPIRIN [Suspect]
     Indication: TENDON PAIN
  6. MARIJUANA [Concomitant]
     Indication: TENDON PAIN
  7. VIAGRA [Suspect]
     Indication: CARDIOVASCULAR DISORDER
     Dosage: 2.5 MG, AS NEEDED
     Route: 048
     Dates: start: 20120103

REACTIONS (9)
  - SKIN DISCOLOURATION [None]
  - PARAESTHESIA [None]
  - TESTICULAR SWELLING [None]
  - NIPPLE PAIN [None]
  - HOMOSEXUALITY [None]
  - SCROTAL PAIN [None]
  - DIZZINESS [None]
  - GENITAL HAEMORRHAGE [None]
  - ALOPECIA [None]
